FAERS Safety Report 4498406-8 (Version None)
Quarter: 2004Q4

REPORT INFORMATION
  Report Type: 
  Country: None (occurrence: None)
  Receive Date: 20041105
  Receipt Date: 20041101
  Transmission Date: 20050328
  Serious: No
  Sender: FDA-Public Use
  Company Number: 2004GB02599

PATIENT
  Age: 55 Year
  Sex: Male
  Weight: 82 kg

DRUGS (7)
  1. OMEPRAZOLE [Suspect]
     Dosage: 20 MG QD
  2. PLETAL [Suspect]
     Indication: PERIPHERAL VASCULAR DISORDER
     Dosage: 100 MG QD PO
     Route: 048
     Dates: start: 20040817, end: 20040930
  3. ROSUVASTATIN [Concomitant]
  4. ENALAPRIL [Concomitant]
  5. CLOPIDOGREL BISULFATE [Concomitant]
  6. VENLAFAXINE [Concomitant]
  7. DOXAZOSIN [Concomitant]

REACTIONS (2)
  - DRUG INTERACTION [None]
  - HEADACHE [None]
